FAERS Safety Report 16187736 (Version 2)
Quarter: 2019Q2

REPORT INFORMATION
  Report Type: Report from Study
  Country: ZA (occurrence: ZA)
  Receive Date: 20190412
  Receipt Date: 20190430
  Transmission Date: 20190711
  Serious: Yes (Death, Hospitalization)
  Sender: FDA-Public Use
  Company Number: ZA-ASTRAZENECA-2019SE55892

PATIENT
  Age: 4 Month
  Sex: Male

DRUGS (1)
  1. SYNAGIS [Suspect]
     Active Substance: PALIVIZUMAB
     Indication: RESPIRATORY SYNCYTIAL VIRUS INFECTION
     Route: 030
     Dates: start: 20190122

REACTIONS (4)
  - Reflux laryngitis [Fatal]
  - Cough [Fatal]
  - Death [Fatal]
  - Vomiting [Fatal]

NARRATIVE: CASE EVENT DATE: 20190329
